FAERS Safety Report 25819194 (Version 2)
Quarter: 2025Q3

REPORT INFORMATION
  Report Type: Spontaneous
  Country: US (occurrence: US)
  Receive Date: 20250918
  Receipt Date: 20250929
  Transmission Date: 20251021
  Serious: No
  Sender: SANOFI AVENTIS
  Company Number: US-SA-2025SA278031

PATIENT
  Sex: Female

DRUGS (10)
  1. KEVZARA [Suspect]
     Active Substance: SARILUMAB
     Indication: Rheumatoid arthritis
     Dosage: 200 MG, QOW
     Route: 058
  2. LOSARTAN POTASSIUM [Concomitant]
     Active Substance: LOSARTAN POTASSIUM
  3. CALCIUM\CHOLECALCIFEROL [Concomitant]
     Active Substance: CALCIUM\CHOLECALCIFEROL
  4. TRAMADOL HCL [Concomitant]
     Active Substance: TRAMADOL HYDROCHLORIDE
  5. AZATHIOPRINE [Concomitant]
     Active Substance: AZATHIOPRINE
  6. CARVEDILOL [Concomitant]
     Active Substance: CARVEDILOL
  7. HYDROCHLOROTHIAZIDE [Concomitant]
     Active Substance: HYDROCHLOROTHIAZIDE
  8. DICLOFENAC SODIUM [Concomitant]
     Active Substance: DICLOFENAC SODIUM
  9. PREDNISONE [Concomitant]
     Active Substance: PREDNISONE
  10. ACETAMINOPHEN [Concomitant]
     Active Substance: ACETAMINOPHEN

REACTIONS (3)
  - Nasal congestion [Not Recovered/Not Resolved]
  - Pain [Unknown]
  - Drug ineffective [Unknown]
